FAERS Safety Report 16861806 (Version 1)
Quarter: 2019Q3

REPORT INFORMATION
  Report Type: Spontaneous
  Country: US (occurrence: US)
  Receive Date: 20190927
  Receipt Date: 20190927
  Transmission Date: 20191005
  Serious: Yes (Other)
  Sender: FDA-Public Use
  Company Number: US-ROCHE-2416215

PATIENT
  Age: 44 Year
  Sex: Male

DRUGS (4)
  1. KLONOPIN [Suspect]
     Active Substance: CLONAZEPAM
     Indication: MANIA
     Route: 048
  2. CHLORPROMAZINE. [Concomitant]
     Active Substance: CHLORPROMAZINE
     Dosage: 75 MG ORALLY AT BEDTIME
     Route: 048
  3. CLONIDINE HYDROCHLORIDE. [Suspect]
     Active Substance: CLONIDINE HYDROCHLORIDE
     Indication: PRODUCT USED FOR UNKNOWN INDICATION
     Route: 065
  4. LITHOBID [Concomitant]
     Active Substance: LITHIUM CARBONATE
     Route: 065

REACTIONS (5)
  - Bradycardia [Recovered/Resolved]
  - Product dispensing error [Unknown]
  - Wrong product administered [Unknown]
  - Medication error [Unknown]
  - Product name confusion [Unknown]
